FAERS Safety Report 9191007 (Version 1)
Quarter: 2013Q1

REPORT INFORMATION
  Report Type: Spontaneous
  Country: US (occurrence: US)
  Receive Date: 20130326
  Receipt Date: 20130326
  Transmission Date: 20140127
  Serious: No
  Sender: FDA-Public Use
  Company Number: US-ASTRAZENECA-2013SE16455

PATIENT
  Age: 45 Year
  Sex: Male

DRUGS (24)
  1. SEROQUEL [Suspect]
     Route: 048
  2. ABILIFY [Suspect]
     Route: 065
  3. CELEXA [Suspect]
     Route: 065
  4. XANAX [Concomitant]
     Route: 048
  5. ASPIRIN [Concomitant]
     Route: 048
  6. CHOLECALCIFEROL [Concomitant]
     Dosage: 1000 UNIT, 2000 UNIT DAILY
     Route: 048
  7. CYANOCOBALAMIN [Concomitant]
     Route: 048
  8. PRISTIQ [Concomitant]
     Route: 048
  9. ARICEPT [Concomitant]
     Route: 048
  10. LASIX [Concomitant]
     Indication: SWELLING
     Dosage: 1-2 TABLET IN AM
     Route: 048
  11. LASIX [Concomitant]
     Indication: SWELLING
     Dosage: 1-2 TABLET, EVERY MORNING AS NEEDED
     Route: 048
  12. RITALIN [Concomitant]
     Route: 048
  13. PAMELOR [Concomitant]
     Route: 048
  14. CONVALLARIA MAJALIS\CRATAEGUS LAEVIGATA LEAF\PROXYPHYLLINE [Concomitant]
     Route: 048
  15. KLOR-CON [Concomitant]
     Route: 048
  16. ZANTAC [Concomitant]
     Route: 048
  17. ZANTAC [Concomitant]
     Route: 048
  18. VIAGRA [Concomitant]
     Dosage: 100 MG,DAILY AS NEEDED
     Route: 048
  19. DEPOTESTOTERONE CYPIONATE [Concomitant]
     Dosage: 200 MG/ML, 1.5 ML EVERY 14 DAY
     Route: 050
  20. TOPAMAX [Concomitant]
     Route: 048
  21. HALCION [Concomitant]
     Dosage: 1-2 TABLET, EVERY DAY
  22. BUPROPION HCL [Concomitant]
  23. CEPHALEXIN [Concomitant]
  24. FLUOXETINE HCL [Concomitant]

REACTIONS (6)
  - Drug intolerance [Unknown]
  - Hallucination [Unknown]
  - Headache [Unknown]
  - Hyperhidrosis [Unknown]
  - Abdominal pain upper [Unknown]
  - Somnambulism [Unknown]
